FAERS Safety Report 20238999 (Version 2)
Quarter: 2022Q1

REPORT INFORMATION
  Report Type: Report from Study
  Country: US (occurrence: US)
  Receive Date: 20211228
  Receipt Date: 20220121
  Transmission Date: 20220423
  Serious: Yes (Hospitalization, Other)
  Sender: FDA-Public Use
  Company Number: US-ABBVIE-21K-163-3770478-00

PATIENT
  Age: 54 Year
  Sex: Female
  Weight: 66.738 kg

DRUGS (3)
  1. HUMIRA [Suspect]
     Active Substance: ADALIMUMAB
     Indication: Rheumatoid arthritis
     Route: 058
     Dates: start: 20190414, end: 20211109
  2. MODERNA COVID-19 VACCINE [Suspect]
     Active Substance: ELASOMERAN
     Indication: COVID-19 immunisation
     Dosage: MODERNA
     Route: 030
     Dates: start: 20210105, end: 20210105
  3. MODERNA COVID-19 VACCINE [Suspect]
     Active Substance: ELASOMERAN
     Dosage: MODERNA
     Route: 030
     Dates: start: 20210202, end: 20210202

REACTIONS (29)
  - Systemic lupus erythematosus [Unknown]
  - Arrhythmia [Unknown]
  - Fatigue [Recovered/Resolved]
  - Chills [Recovered/Resolved]
  - Fatigue [Not Recovered/Not Resolved]
  - Cardiac murmur [Unknown]
  - Chills [Recovered/Resolved]
  - Injury associated with device [Unknown]
  - Feeling abnormal [Unknown]
  - Ventricular extrasystoles [Unknown]
  - Supraventricular tachycardia [Unknown]
  - Palpitations [Unknown]
  - Chest discomfort [Not Recovered/Not Resolved]
  - Therapeutic product effect decreased [Recovering/Resolving]
  - Headache [Recovered/Resolved]
  - Pyrexia [Recovered/Resolved]
  - Vomiting [Recovered/Resolved]
  - Pyrexia [Recovered/Resolved]
  - Headache [Recovered/Resolved]
  - Bone pain [Recovering/Resolving]
  - Injection site haemorrhage [Recovering/Resolving]
  - Rheumatoid arthritis [Recovering/Resolving]
  - Vomiting [Unknown]
  - Chest pain [Not Recovered/Not Resolved]
  - Angina pectoris [Unknown]
  - Injection site haemorrhage [Unknown]
  - Device issue [Unknown]
  - Device issue [Unknown]
  - Device issue [Unknown]

NARRATIVE: CASE EVENT DATE: 20190701
